FAERS Safety Report 5394864-5 (Version None)
Quarter: 2007Q3

REPORT INFORMATION
  Report Type: 
  Country: None (occurrence: None)
  Receive Date: 20070720
  Receipt Date: 20070706
  Transmission Date: 20080115
  Serious: Yes (Hospitalization, Other)
  Sender: FDA-Public Use
  Company Number: 2007US-08506

PATIENT
  Age: 15 Year
  Sex: Male

DRUGS (8)
  1. MIDAZOLAM HYDROCHLORIDE [Suspect]
     Indication: ANAESTHESIA
     Dosage: 2.5 MG
  2. RAN-FENTANYL TRANSDERMAL SYSTEM (FENTANYL) UNKNOWN [Suspect]
     Indication: ANAESTHESIA
     Dosage: 100 MCG/HR
  3. PROPOFOL [Suspect]
     Indication: ANAESTHESIA
     Dosage: 150 MG
  4. ACETAMINOPHEN [Suspect]
     Indication: ANALGESIA
  5. PARECOXIB SODIUM [Suspect]
     Indication: ANALGESIA
  6. OXYGEN [Concomitant]
  7. NITROUS  OXIDE [Concomitant]
  8. SEVOFLURANE [Concomitant]

REACTIONS (6)
  - CEREBROVASCULAR DISORDER [None]
  - DIZZINESS [None]
  - HEMIPARESIS [None]
  - MIGRAINE WITH AURA [None]
  - SENSORY LOSS [None]
  - VISION BLURRED [None]
